FAERS Safety Report 4525237-2 (Version None)
Quarter: 2004Q4

REPORT INFORMATION
  Report Type: 
  Country: None (occurrence: None)
  Receive Date: 20041213
  Receipt Date: 20041202
  Transmission Date: 20050328
  Serious: Yes (Death)
  Sender: FDA-Public Use
  Company Number: BE-JNJFOC-20041001058

PATIENT
  Age: 63 Year
  Sex: Male

DRUGS (1)
  1. PREPULSID [Suspect]
     Indication: DIABETIC GASTROPARESIS
     Route: 065
     Dates: start: 20040701, end: 20040801

REACTIONS (3)
  - ANOREXIA [None]
  - DEPRESSION [None]
  - NOSOCOMIAL INFECTION [None]
